FAERS Safety Report 8126054-7 (Version None)
Quarter: 2012Q1

REPORT INFORMATION
  Report Type: 
  Country: None (occurrence: None)
  Receive Date: 20120209
  Receipt Date: 20120130
  Transmission Date: 20120608
  Serious: Yes (Other)
  Sender: FDA-Public Use
  Company Number: PHHY2012FR007947

PATIENT
  Sex: Male

DRUGS (2)
  1. ANDROCUR [Suspect]
  2. CLOZAPINE [Suspect]
     Indication: PSYCHOTIC DISORDER
     Dosage: 25 MG, DAILY
     Dates: start: 20120101

REACTIONS (1)
  - GYNAECOMASTIA [None]
